FAERS Safety Report 15298406 (Version 1)
Quarter: 2018Q3

REPORT INFORMATION
  Report Type: Spontaneous
  Country: IN (occurrence: IN)
  Receive Date: 20180820
  Receipt Date: 20180820
  Transmission Date: 20181010
  Serious: Yes (Hospitalization)
  Sender: FDA-Public Use
  Company Number: IN-VALIDUS PHARMACEUTICALS LLC-IN-2018VAL000885

PATIENT
  Age: 38 Year
  Sex: Female

DRUGS (10)
  1. CALCITRIOL. [Suspect]
     Active Substance: CALCITRIOL
     Dosage: 0.5 G, UNK
     Route: 048
  2. L?THYROXINE                        /00068001/ [Concomitant]
     Active Substance: LEVOTHYROXINE
     Indication: HYPOPARATHYROIDISM
     Dosage: 100 G, UNK
  3. PROSTIN E2 [Concomitant]
     Active Substance: DINOPROSTONE
     Indication: PROPHYLAXIS
     Dosage: TWICE
  4. L?THYROXINE                        /00068001/ [Concomitant]
     Active Substance: LEVOTHYROXINE
     Dosage: 187.5 G, UNK
  5. VITAMIN D3 [Concomitant]
     Active Substance: CHOLECALCIFEROL
     Indication: HYPOPARATHYROIDISM
     Dosage: 400 IU, UNK
  6. VITAMIN D3 [Concomitant]
     Active Substance: CHOLECALCIFEROL
     Dosage: 1400 IU, UNK
  7. CALCIUM CARBONATE. [Concomitant]
     Active Substance: CALCIUM CARBONATE
     Indication: HYPOPARATHYROIDISM
     Dosage: 2 G, UNK
     Route: 048
  8. CALCIUM CARBONATE. [Concomitant]
     Active Substance: CALCIUM CARBONATE
     Dosage: 3.2 G OF ELEMENTAL CALCIUM THEN DECREASED BY 400 MG TO 2.8 G AFTER DELIVERY (8 G)
     Route: 048
  9. CALCITRIOL. [Suspect]
     Active Substance: CALCITRIOL
     Indication: HYPOPARATHYROIDISM
     Dosage: 0.25 G, UNK
     Route: 048
  10. VITAMIN D3 [Concomitant]
     Active Substance: CHOLECALCIFEROL
     Dosage: 1600 IU, UNK

REACTIONS (13)
  - Anxiety [Unknown]
  - Electrolyte imbalance [Unknown]
  - Vomiting [Unknown]
  - Pyrexia [Unknown]
  - Abdominal pain [Unknown]
  - Muscle twitching [Unknown]
  - Hypocalcaemia [Unknown]
  - Hypoaesthesia [Unknown]
  - Pain [Unknown]
  - Respiratory alkalosis [Unknown]
  - Tetany [Unknown]
  - Hyperventilation [Unknown]
  - Maternal exposure during pregnancy [Unknown]
